FAERS Safety Report 7756283-3 (Version None)
Quarter: 2011Q3

REPORT INFORMATION
  Report Type: 
  Country: None (occurrence: None)
  Receive Date: 20110916
  Receipt Date: 20110906
  Transmission Date: 20111222
  Serious: Yes (Death, Other)
  Sender: FDA-Public Use
  Company Number: JP-ROCHE-756107

PATIENT
  Sex: Male
  Weight: 64 kg

DRUGS (14)
  1. AVASTIN [Suspect]
     Indication: LUNG ADENOCARCINOMA METASTATIC
     Route: 041
     Dates: start: 20110120, end: 20110120
  2. DECADRON [Concomitant]
     Route: 041
     Dates: start: 20110120, end: 20110120
  3. VENA [Concomitant]
     Route: 048
     Dates: start: 20110120, end: 20110120
  4. EMEND [Concomitant]
     Route: 048
     Dates: start: 20110120, end: 20110121
  5. CODEINE SULFATE [Concomitant]
     Route: 048
  6. MUCOSOLVAN [Concomitant]
     Route: 048
     Dates: start: 20110120, end: 20110124
  7. TAXOL [Suspect]
     Indication: LUNG ADENOCARCINOMA METASTATIC
     Dosage: DOSAGE WAS REPORTED AS UNCERTAIN
     Route: 041
     Dates: start: 20110120, end: 20110120
  8. NAPROXEN [Concomitant]
     Route: 048
     Dates: start: 20110120, end: 20110124
  9. ZANTAC [Concomitant]
     Route: 041
     Dates: start: 20110120, end: 20110120
  10. CARBOPLATIN [Suspect]
     Indication: LUNG ADENOCARCINOMA METASTATIC
     Dosage: DOSAGE WAS REPORTED AS UNCERTAIN
     Route: 041
     Dates: start: 20110120, end: 20110120
  11. MUCODYNE [Concomitant]
     Route: 048
     Dates: start: 20110120, end: 20110124
  12. MAGNESIUM OXIDE [Concomitant]
     Route: 048
     Dates: start: 20110120, end: 20110124
  13. ALOXI [Concomitant]
     Route: 041
     Dates: start: 20110120, end: 20110120
  14. EMEND [Concomitant]
     Route: 048
     Dates: start: 20110122, end: 20110122

REACTIONS (4)
  - HEPATITIS FULMINANT [None]
  - GASTRIC ULCER HAEMORRHAGE [None]
  - RESPIRATORY RATE INCREASED [None]
  - VARICES OESOPHAGEAL [None]
